FAERS Safety Report 10606587 (Version 2)
Quarter: 2015Q1

REPORT INFORMATION
  Report Type: Report from Study
  Country: FR (occurrence: FR)
  Receive Date: 20141125
  Receipt Date: 20150205
  Transmission Date: 20150720
  Serious: Yes (Hospitalization)
  Sender: FDA-Public Use
  Company Number: FR-BAYER-2014-170013

PATIENT
  Age: 63 Year
  Sex: Male

DRUGS (7)
  1. OXYNORM [Concomitant]
     Active Substance: OXYCODONE HYDROCHLORIDE
  2. REGORAFENIB [Suspect]
     Active Substance: REGORAFENIB
     Indication: COLORECTAL CANCER METASTATIC
     Dosage: DAILY DOSE 160 MG
     Dates: start: 20130329
  3. ZOMETA [Concomitant]
     Active Substance: ZOLEDRONIC ACID
  4. LAROXYL [Concomitant]
     Active Substance: AMITRIPTYLINE
  5. NEURONTIN [Concomitant]
     Active Substance: GABAPENTIN
  6. OXYCONTIN [Concomitant]
     Active Substance: OXYCODONE HYDROCHLORIDE
  7. DAFALGAN [Concomitant]
     Active Substance: ACETAMINOPHEN

REACTIONS (13)
  - Myalgia [Unknown]
  - Thrombocytopenia [Not Recovered/Not Resolved]
  - Decreased appetite [Unknown]
  - Cerebrovascular accident [Recovered/Resolved]
  - Diarrhoea [Unknown]
  - Pyrexia [Recovered/Resolved]
  - Arthralgia [Unknown]
  - Constipation [Recovered/Resolved]
  - Asthenia [Not Recovered/Not Resolved]
  - Asthenia [Recovered/Resolved]
  - Epistaxis [Unknown]
  - Hypertension [Unknown]
  - Arrhythmia supraventricular [Recovered/Resolved]

NARRATIVE: CASE EVENT DATE: 20130330
